FAERS Safety Report 9436828 (Version 1)
Quarter: 2013Q3

REPORT INFORMATION
  Report Type: Spontaneous
  Country: US (occurrence: US)
  Receive Date: 20130802
  Receipt Date: 20130802
  Transmission Date: 20140515
  Serious: No
  Sender: FDA-Public Use
  Company Number: US-PFIZER INC-2013223025

PATIENT
  Age: 64 Year
  Sex: Female
  Weight: 76.64 kg

DRUGS (3)
  1. PROTONIX [Suspect]
     Indication: GASTROOESOPHAGEAL REFLUX DISEASE
     Dosage: 40 MG, 1X/DAY
     Route: 048
  2. PROTONIX [Suspect]
     Dosage: 40 MG, 2X/DAY
     Route: 048
  3. LEXAPRIL [Concomitant]
     Dosage: UNK

REACTIONS (3)
  - Hearing impaired [Unknown]
  - Pruritus [Unknown]
  - Hepatic cyst [Unknown]
